FAERS Safety Report 9805748 (Version 3)
Quarter: 2014Q1

REPORT INFORMATION
  Report Type: Spontaneous
  Country: CA (occurrence: CA)
  Receive Date: 20140109
  Receipt Date: 20140203
  Transmission Date: 20141002
  Serious: Yes (Other)
  Sender: FDA-Public Use
  Company Number: CA-PFIZER INC-2014004695

PATIENT
  Age: 78 Year
  Sex: Female

DRUGS (29)
  1. AMLODIPINE BESILATE [Suspect]
     Indication: HYPERTENSION
     Dosage: 10 MG, DAILY
     Route: 065
  2. VALSARTAN [Suspect]
     Indication: HYPERTENSION
     Dosage: 320 MG, DAILY
  3. METFORMIN HCL [Suspect]
     Indication: DIABETES MELLITUS
     Dosage: 500 MG, 2X/DAY
     Route: 065
  4. ALISKIREN [Suspect]
     Indication: HYPERTENSION
     Dosage: 300 MG, DAILY
  5. LABETALOL [Suspect]
     Indication: HYPERTENSION
     Dosage: 200 MG, 2X/DAY
     Route: 065
  6. HYDRALAZINE [Suspect]
     Indication: HYPERTENSION
     Dosage: UNK
  7. GLICLAZIDE [Suspect]
     Indication: DIABETES MELLITUS
     Dosage: 30 MG, 2X/DAY
  8. GLICLAZIDE [Suspect]
     Dosage: 60 MG, DAILY
     Route: 065
  9. SITAGLIPTIN [Suspect]
     Indication: DIABETES MELLITUS
     Dosage: 100 MG, DAILY
  10. PANTOPRAZOLE [Concomitant]
     Dosage: 40 MG, DAILY
     Route: 065
  11. METHOCARBAMOL/PARACETAMOL [Concomitant]
     Indication: BACK PAIN
     Dosage: 400/325 MG, 2X/DAY
  12. CALCIUM CARBONATE [Concomitant]
     Indication: OSTEOPOROSIS
     Dosage: TWICE DAILY
     Route: 065
  13. RISEDRONATE SODIUM [Concomitant]
     Indication: OSTEOPOROSIS
     Dosage: 35 MG 1/WEEK, ON WEDNESDAYS
  14. PRAMIPEXOLE DIHYDROCHLORIDE [Concomitant]
     Indication: RESTLESS LEGS SYNDROME
     Dosage: 0.25 MG, 1X/DAY, (AT BED TIME)
  15. TRAMADOL HYDROCHLORIDE [Concomitant]
     Indication: PAIN
     Dosage: UNK
     Route: 065
  16. SIMVASTATIN [Concomitant]
     Indication: CEREBROVASCULAR ACCIDENT
     Dosage: 10 MG, DAILY
  17. FUROSEMIDE [Concomitant]
     Indication: OEDEMA PERIPHERAL
     Dosage: 40 MG, DAILY
  18. ACETYLSALICYLIC ACID [Concomitant]
     Indication: CEREBROVASCULAR ACCIDENT
     Dosage: 81 MG, DAILY
  19. ALLOPURINOL [Concomitant]
     Indication: GOUT
     Dosage: 250 MG, DAILY
  20. CALCIPOTRIENE [Concomitant]
     Indication: PSORIASIS
     Dosage: AT BED TIME
     Route: 065
  21. BETAMETHASONE [Concomitant]
     Indication: PSORIASIS
     Dosage: UNK
  22. FLUTICASONE PROPIONATE [Concomitant]
     Indication: COUGH
     Dosage: 250 MCG, 2 DF, 2X/DAY
  23. FLUTICASONE PROPIONATE [Concomitant]
     Indication: WHEEZING
  24. SALBUTAMOL [Concomitant]
     Dosage: AS NEEDED
  25. LEVOTHYROXINE [Concomitant]
     Indication: HYPOTHYROIDISM
     Dosage: 0.088 MG, 1X/DAY, EACH MORNING.
  26. VITAMIN B12 [Concomitant]
     Dosage: UNK
  27. RANITIDINE [Concomitant]
     Dosage: 150 MG, AS NEEDED
  28. VITAMIN D [Concomitant]
     Indication: OSTEOPOROSIS
     Dosage: DAILY
  29. PSYLLIUM [Concomitant]
     Indication: CONSTIPATION
     Dosage: TWICE DAILY

REACTIONS (2)
  - Blood pressure inadequately controlled [Recovering/Resolving]
  - Diabetes mellitus inadequate control [Recovering/Resolving]
